FAERS Safety Report 16914434 (Version 1)
Quarter: 2019Q4

REPORT INFORMATION
  Report Type: Spontaneous
  Country: US (occurrence: US)
  Receive Date: 20190820
  Receipt Date: 20190820
  Transmission Date: 20200122
  Serious: No
  Sender: FDA-Public Use
  Company Number: None

PATIENT
  Age: 80 Year
  Sex: Female

DRUGS (3)
  1. CVS DRY EYE RELIEF LUBRICANT EYE DROPS 0.5 FL OZ 15 ML [Suspect]
     Active Substance: GLYCERIN\HYPROMELLOSES\POLYETHYLENE GLYCOL 400
     Indication: DRY EYE
     Dates: start: 201905, end: 201907
  2. TYLENOL [Concomitant]
     Active Substance: ACETAMINOPHEN
  3. ASPIRIN. [Concomitant]
     Active Substance: ASPIRIN

REACTIONS (4)
  - Instillation site infection [None]
  - Recalled product administered [None]
  - Product contamination [None]
  - Hordeolum [None]

NARRATIVE: CASE EVENT DATE: 201906
